FAERS Safety Report 16915013 (Version 3)
Quarter: 2019Q4

REPORT INFORMATION
  Report Type: Report from Study
  Country: US (occurrence: US)
  Receive Date: 20191014
  Receipt Date: 20191126
  Transmission Date: 20200122
  Serious: Yes (Other)
  Sender: FDA-Public Use
  Company Number: US-B.I. PHARMACEUTICALS,INC./RIDGEFIELD-2019-BI-106239

PATIENT
  Age: 54 Year
  Sex: Male

DRUGS (2)
  1. GILOTRIF [Suspect]
     Active Substance: AFATINIB
     Indication: K-RAS GENE MUTATION
     Route: 065
     Dates: start: 201810
  2. GILOTRIF [Suspect]
     Active Substance: AFATINIB
     Indication: PANCREATIC CARCINOMA METASTATIC

REACTIONS (3)
  - Paronychia [Unknown]
  - Malignant neoplasm progression [Unknown]
  - Rash [Unknown]
